FAERS Safety Report 5637194-6 (Version None)
Quarter: 2008Q1

REPORT INFORMATION
  Report Type: 
  Country: None (occurrence: None)
  Receive Date: 20080225
  Receipt Date: 20080213
  Transmission Date: 20080703
  Serious: Yes (Death, Life-Threatening, Hospitalization)
  Sender: FDA-Public Use
  Company Number: FR-BRISTOL-MYERS SQUIBB COMPANY-14085500

PATIENT
  Age: 40 Year
  Sex: Female

DRUGS (6)
  1. ENDOXAN [Suspect]
     Indication: BREAST CANCER
     Dosage: FIRST CYCLE,12-JUL-2007;CYCLOPHOSPHAMIDE 600MG/M2,
     Route: 042
     Dates: start: 20070802, end: 20070802
  2. ADRIBLASTIN [Suspect]
     Indication: BREAST CANCER
     Dosage: FIRST CYCLE 12JUL07 60 MG/M2
     Route: 042
     Dates: start: 20070802, end: 20070802
  3. XANAX [Concomitant]
     Route: 048
  4. IMMOVANE [Concomitant]
     Route: 048
  5. TAXOTERE [Concomitant]
     Indication: BREAST CANCER
     Dates: start: 20070101, end: 20070101
  6. NEULASTA [Concomitant]
     Dates: start: 20070713

REACTIONS (10)
  - ACUTE ENDOCARDITIS [None]
  - ANOREXIA [None]
  - ASTHENIA [None]
  - CHOLESTASIS [None]
  - DEPRESSED LEVEL OF CONSCIOUSNESS [None]
  - MULTI-ORGAN FAILURE [None]
  - PANCYTOPENIA [None]
  - SEPTIC NECROSIS [None]
  - SEPTIC SHOCK [None]
  - VOMITING [None]
